FAERS Safety Report 6510959-4 (Version None)
Quarter: 2009Q4

REPORT INFORMATION
  Report Type: 
  Country: None (occurrence: None)
  Receive Date: 20091222
  Receipt Date: 20090209
  Transmission Date: 20100525
  Serious: No
  Sender: FDA-Public Use
  Company Number: US-ASTRAZENECA-2009UW03672

PATIENT
  Age: 84 Year
  Sex: Female
  Weight: 67.6 kg

DRUGS (6)
  1. CRESTOR [Suspect]
     Indication: BLOOD CHOLESTEROL INCREASED
     Route: 048
     Dates: start: 20081209, end: 20081223
  2. LEVOTHYROXINE SODIUM [Concomitant]
     Indication: HYPERTHYROIDISM
  3. PROTONIX [Concomitant]
     Indication: GASTROOESOPHAGEAL REFLUX DISEASE
  4. COUMADIN [Concomitant]
  5. EXFORGE [Concomitant]
     Indication: HYPERTENSION
  6. AMBIEN [Concomitant]

REACTIONS (4)
  - BLOOD PRESSURE INCREASED [None]
  - DYSKINESIA [None]
  - GAIT DISTURBANCE [None]
  - PAIN IN EXTREMITY [None]
